FAERS Safety Report 6674769-X (Version None)
Quarter: 2010Q2

REPORT INFORMATION
  Report Type: 
  Country: None (occurrence: None)
  Receive Date: 20100409
  Receipt Date: 20100325
  Transmission Date: 20101027
  Serious: Yes (Other)
  Sender: FDA-Public Use
  Company Number: US-PFIZER INC-2010038576

PATIENT
  Sex: Female
  Weight: 83.9 kg

DRUGS (1)
  1. LIPITOR [Suspect]
     Indication: BLOOD CHOLESTEROL INCREASED
     Dosage: UNK
     Route: 048

REACTIONS (5)
  - BREAST CANCER FEMALE [None]
  - DRUG INEFFECTIVE [None]
  - FATIGUE [None]
  - MYALGIA [None]
  - OSTEOPENIA [None]
